FAERS Safety Report 4978850-2 (Version None)
Quarter: 2006Q2

REPORT INFORMATION
  Report Type: 
  Country: None (occurrence: None)
  Receive Date: 20060417
  Receipt Date: 20060405
  Transmission Date: 20061013
  Serious: No
  Sender: FDA-Public Use
  Company Number: B0418402A

PATIENT
  Age: 55 Year
  Sex: Male

DRUGS (10)
  1. FLUTICASONE PROPIONATE [Suspect]
  2. ITRACONAZOLE [Suspect]
     Indication: BRONCHOPULMONARY ASPERGILLOSIS ALLERGIC
     Dosage: PER DAY
  3. TERBUTALINE SULFATE [Concomitant]
  4. MONTELUKAST SODIUM [Concomitant]
  5. ALENDRONATE SODIUM [Concomitant]
  6. AMITRIPTYLINE HCL [Concomitant]
  7. CODEINE PHOSPHATE [Concomitant]
  8. FORMOTEROL [Concomitant]
  9. STEROID [Concomitant]
  10. PREDNISOLONE [Concomitant]

REACTIONS (12)
  - ACNE [None]
  - ACTH STIMULATION TEST ABNORMAL [None]
  - BLOOD PRESSURE SYSTOLIC INCREASED [None]
  - CONTUSION [None]
  - CUSHING'S SYNDROME [None]
  - CUSHINGOID [None]
  - DRUG INTERACTION [None]
  - DRUG LEVEL INCREASED [None]
  - FATIGUE [None]
  - GLUCOSE TOLERANCE IMPAIRED [None]
  - LIPOHYPERTROPHY [None]
  - MYOPATHY [None]
